FAERS Safety Report 6929710-9 (Version None)
Quarter: 2010Q3

REPORT INFORMATION
  Report Type: 
  Country: None (occurrence: None)
  Receive Date: 20100813
  Receipt Date: 20100802
  Transmission Date: 20110219
  Serious: Yes (Other)
  Sender: FDA-Public Use
  Company Number: 7010181

PATIENT
  Age: 40 Year
  Sex: Female
  Weight: 49 kg

DRUGS (1)
  1. REBIF [Suspect]
     Dosage: 22 MCG, 3 IN 1 WK, SUBCUTANEOUS
     Route: 058
     Dates: start: 20100517, end: 20100712

REACTIONS (5)
  - APATHY [None]
  - EMOTIONAL DISORDER [None]
  - FATIGUE [None]
  - VERTIGO [None]
  - WEIGHT DECREASED [None]
